FAERS Safety Report 4990132-1 (Version None)
Quarter: 2006Q2

REPORT INFORMATION
  Report Type: 
  Country: None (occurrence: None)
  Receive Date: 20060503
  Receipt Date: 20041020
  Transmission Date: 20061013
  Serious: Yes (Hospitalization)
  Sender: FDA-Public Use
  Company Number: US-MERCK-0410USA03252

PATIENT
  Age: 45 Year
  Sex: Male
  Weight: 70 kg

DRUGS (5)
  1. VIOXX [Suspect]
     Indication: OSTEOARTHRITIS
     Route: 048
     Dates: start: 19990804, end: 20040930
  2. VIOXX [Suspect]
     Indication: ANKYLOSING SPONDYLITIS
     Route: 048
     Dates: start: 19990804, end: 20040930
  3. CALAN [Concomitant]
     Route: 065
  4. DYAZIDE [Concomitant]
     Route: 065
  5. UNIVASC [Concomitant]
     Route: 065

REACTIONS (5)
  - ACUTE MYOCARDIAL INFARCTION [None]
  - BLADDER MASS [None]
  - CORONARY ARTERY DISEASE [None]
  - DIVERTICULITIS [None]
  - INFECTION [None]
